FAERS Safety Report 5003211-X (Version None)
Quarter: 2006Q2

REPORT INFORMATION
  Report Type: 
  Country: None (occurrence: None)
  Receive Date: 20060510
  Receipt Date: 20060427
  Transmission Date: 20061013
  Serious: Yes (Hospitalization)
  Sender: FDA-Public Use
  Company Number: 2006057184

PATIENT
  Age: 47 Year
  Sex: Female

DRUGS (1)
  1. ZITHROMAX [Suspect]
     Indication: ACUTE TONSILLITIS
     Dosage: ORAL
     Route: 048
     Dates: start: 20060406, end: 20060408

REACTIONS (6)
  - ABASIA [None]
  - DECREASED APPETITE [None]
  - DEPRESSION [None]
  - DRUG EFFECT DECREASED [None]
  - FATIGUE [None]
  - INSOMNIA [None]
